FAERS Safety Report 11082454 (Version 4)
Quarter: 2017Q2

REPORT INFORMATION
  Report Type: Spontaneous
  Country: JP (occurrence: JP)
  Receive Date: 20150501
  Receipt Date: 20170524
  Transmission Date: 20170829
  Serious: Yes (Other)
  Sender: FDA-Public Use
  Company Number: JP-PFIZER INC-2015151629

PATIENT
  Age: 67 Year
  Sex: Female
  Weight: 48.3 kg

DRUGS (13)
  1. LYRICA [Suspect]
     Active Substance: PREGABALIN
     Dosage: 75 MG, 1X/DAY AT BEDTIME
     Route: 048
     Dates: start: 20111206, end: 20111226
  2. AMLODIPINE [Concomitant]
     Active Substance: AMLODIPINE BESYLATE
     Indication: HYPERTENSION
     Dosage: 5 MG, DAILY
     Route: 048
  3. JUVELA [Concomitant]
     Active Substance: .ALPHA.-TOCOPHEROL\RETINOL
     Indication: HYPOAESTHESIA
     Dosage: UNK
     Route: 048
     Dates: start: 20110309
  4. LYRICA [Suspect]
     Active Substance: PREGABALIN
     Dosage: 75 MG, 2X/DAY INTHE MORNING AND BEDTIME
     Route: 048
     Dates: start: 20111024, end: 20111106
  5. EPADEL [Concomitant]
     Active Substance: ICOSAPENT
     Indication: PERIPHERAL ARTERIAL OCCLUSIVE DISEASE
     Dosage: 300 MG, 2X/DAY
     Route: 048
  6. LYRICA [Suspect]
     Active Substance: PREGABALIN
     Dosage: 25 MG, 2X/DAY IN THE MORNING AND BEDTIME
     Route: 048
     Dates: start: 20110912, end: 20110925
  7. LYRICA [Suspect]
     Active Substance: PREGABALIN
     Dosage: 75 MG, 1X/DAY AT BEDTIME
     Route: 048
     Dates: start: 20110926, end: 20111010
  8. AMOBAN [Suspect]
     Active Substance: ZOPICLONE
     Indication: INSOMNIA
     Dosage: UNK
     Route: 048
  9. LYRICA [Suspect]
     Active Substance: PREGABALIN
     Dosage: 125 MG, DAILY(50 MG IN THE MORNING, 75 MG AT BEDTIME)
     Route: 048
     Dates: start: 20111107, end: 20111205
  10. LYRICA [Suspect]
     Active Substance: PREGABALIN
     Dosage: 100 MG, DAILY(25 MG IN THE MORNING, 75 MG AT BEDTIME)
     Route: 048
     Dates: start: 20111011, end: 20111023
  11. LYRICA [Suspect]
     Active Substance: PREGABALIN
     Dosage: UNK
     Route: 048
     Dates: start: 20120110
  12. JUVELA [Concomitant]
     Active Substance: .ALPHA.-TOCOPHEROL\RETINOL
     Indication: PERIPHERAL COLDNESS
  13. LYRICA [Suspect]
     Active Substance: PREGABALIN
     Indication: NEURALGIA
     Dosage: 25 MG, 1X/DAY AT BEDTIME
     Route: 048
     Dates: start: 20110905, end: 20110911

REACTIONS (2)
  - Glaucoma [Recovering/Resolving]
  - Dizziness [Unknown]

NARRATIVE: CASE EVENT DATE: 2011
